FAERS Safety Report 6313139-0 (Version None)
Quarter: 2009Q3

REPORT INFORMATION
  Report Type: 
  Country: None (occurrence: None)
  Receive Date: 20090818
  Receipt Date: 20090811
  Transmission Date: 20100115
  Serious: Yes (Hospitalization, Other)
  Sender: FDA-Public Use
  Company Number: FR-AVENTIS-200914825EU

PATIENT
  Age: 84 Year
  Sex: Female

DRUGS (3)
  1. FLUDEX                             /00340101/ [Suspect]
     Route: 048
  2. LODALES [Suspect]
     Route: 048
     Dates: end: 20090301
  3. NEXIUM [Suspect]
     Route: 048

REACTIONS (1)
  - APLASIA PURE RED CELL [None]
